FAERS Safety Report 11225962 (Version 2)
Quarter: 2018Q4

REPORT INFORMATION
  Report Type: Spontaneous
  Country: US (occurrence: US)
  Receive Date: 20150629
  Receipt Date: 20181106
  Transmission Date: 20190204
  Serious: Yes (Death)
  Sender: FDA-Public Use
  Company Number: US-BAUSCH-BL-2015-016176

PATIENT
  Age: 47 Year
  Sex: Female

DRUGS (3)
  1. XENAZINE [Suspect]
     Active Substance: TETRABENAZINE
     Indication: CEREBRAL ARTERY OCCLUSION
     Dosage: 12.5 MG AM AND 25 MG IN THE PM
     Route: 048
     Dates: start: 201009, end: 201506
  2. XENAZINE [Suspect]
     Active Substance: TETRABENAZINE
     Indication: CEREBRAL INFARCTION
  3. XENAZINE [Suspect]
     Active Substance: TETRABENAZINE
     Indication: CHOREA
     Route: 048
     Dates: start: 200907

REACTIONS (2)
  - Death [Fatal]
  - Prescribed overdose [Unknown]

NARRATIVE: CASE EVENT DATE: 20150607
